FAERS Safety Report 21584519 (Version 1)
Quarter: 2022Q4

REPORT INFORMATION
  Report Type: Report from Study
  Country: US (occurrence: US)
  Receive Date: 20221111
  Receipt Date: 20221111
  Transmission Date: 20230112
  Serious: No
  Sender: FDA-Public Use
  Company Number: US-ABBVIE-4142234

PATIENT
  Sex: Male

DRUGS (4)
  1. HUMIRA [Suspect]
     Active Substance: ADALIMUMAB
     Indication: Rheumatoid arthritis
     Route: 058
  2. POTASSIUM [Concomitant]
     Active Substance: POTASSIUM
     Indication: Product used for unknown indication
  3. Moderna [Concomitant]
     Indication: COVID-19 immunisation
     Dosage: ONE IN ONCE
     Route: 030
  4. SULINDAC [Concomitant]
     Active Substance: SULINDAC
     Indication: Product used for unknown indication

REACTIONS (2)
  - Pain [Unknown]
  - Pain [Unknown]
